FAERS Safety Report 16861943 (Version 1)
Quarter: 2019Q3

REPORT INFORMATION
  Report Type: Spontaneous
  Country: DE (occurrence: DE)
  Receive Date: 20190927
  Receipt Date: 20190927
  Transmission Date: 20191005
  Serious: Yes (Other)
  Sender: FDA-Public Use
  Company Number: DE-ANIPHARMA-2019-DE-000135

PATIENT
  Age: 62 Year
  Sex: Male
  Weight: 90 kg

DRUGS (8)
  1. XTANDI [Suspect]
     Active Substance: ENZALUTAMIDE
     Dosage: 160 MG DAILY
     Route: 065
     Dates: start: 201903
  2. NO MATCH [Concomitant]
     Active Substance: UNSPECIFIED INGREDIENT
     Dosage: UNK
     Route: 065
  3. ETORICOXIB. [Concomitant]
     Active Substance: ETORICOXIB
     Dosage: UNK, ONCE DAILY (STRENGTH: 90)
     Route: 065
     Dates: start: 20190329
  4. NOVALGIN (METAMIZOLE SODIUM) [Suspect]
     Active Substance: METAMIZOLE SODIUM
     Dosage: UNK UNK, THRICE DAILY
     Route: 065
     Dates: start: 20190329
  5. BICALUTAMIDE. [Suspect]
     Active Substance: BICALUTAMIDE
     Indication: PRODUCT USED FOR UNKNOWN INDICATION
     Dosage: 50 MG DAILY
     Route: 048
     Dates: start: 20190329
  6. XGEVA [Concomitant]
     Active Substance: DENOSUMAB
     Dosage: 120 MG MONTH
     Route: 058
     Dates: start: 20190403
  7. TRENANTONE [Suspect]
     Active Substance: LEUPROLIDE ACETATE
     Dosage: UNK UNK, 3 MONTH DEPOT
     Route: 065
     Dates: start: 20190329
  8. OXYCODONE [Suspect]
     Active Substance: OXYCODONE
     Dosage: UNK UNK, UNKNOWN FREQ
     Route: 065
     Dates: start: 20190329

REACTIONS (7)
  - Raynaud^s phenomenon [Unknown]
  - Drug interaction [Unknown]
  - Gait disturbance [Not Recovered/Not Resolved]
  - Poor peripheral circulation [Unknown]
  - Formication [Not Recovered/Not Resolved]
  - Skin discolouration [Not Recovered/Not Resolved]
  - Paraesthesia [Not Recovered/Not Resolved]
